FAERS Safety Report 20712697 (Version 1)
Quarter: 2022Q2

REPORT INFORMATION
  Report Type: Report from Study
  Country: JP (occurrence: JP)
  Receive Date: 20220415
  Receipt Date: 20220415
  Transmission Date: 20220721
  Serious: Yes (Life-Threatening, Other)
  Sender: FDA-Public Use
  Company Number: JP-CELGENE-JPN-20220202548

PATIENT
  Sex: Male
  Weight: 58.3 kg

DRUGS (35)
  1. LENALIDOMIDE [Suspect]
     Active Substance: LENALIDOMIDE
     Indication: Plasma cell myeloma
     Route: 048
     Dates: start: 20190827, end: 2019
  2. LENALIDOMIDE [Suspect]
     Active Substance: LENALIDOMIDE
     Route: 048
     Dates: start: 20191015, end: 20220104
  3. DEXAMETHASONE [Suspect]
     Active Substance: DEXAMETHASONE
     Indication: Plasma cell myeloma
     Route: 048
     Dates: start: 20190827
  4. DEXAMETHASONE [Suspect]
     Active Substance: DEXAMETHASONE
     Route: 048
     Dates: start: 20200107, end: 2020
  5. DEXAMETHASONE [Suspect]
     Active Substance: DEXAMETHASONE
     Route: 048
     Dates: start: 20200312, end: 2020
  6. DEXAMETHASONE [Suspect]
     Active Substance: DEXAMETHASONE
     Route: 048
     Dates: start: 20200309, end: 20220105
  7. BORTEZOMIB [Suspect]
     Active Substance: BORTEZOMIB
     Indication: Plasma cell myeloma
     Route: 058
     Dates: start: 20190827, end: 20200228
  8. RABEPRAZOLE SODIUM [Concomitant]
     Active Substance: RABEPRAZOLE SODIUM
     Indication: Gastritis prophylaxis
     Dosage: 10 MILLIGRAM
     Route: 048
     Dates: start: 20190827
  9. EDOXABAN TOSYLATE [Concomitant]
     Active Substance: EDOXABAN TOSYLATE
     Indication: Thrombosis prophylaxis
     Dosage: 30 MILLIGRAM
     Route: 048
     Dates: start: 20190828
  10. FEBUXOSTAT [Concomitant]
     Active Substance: FEBUXOSTAT
     Indication: Prophylaxis
     Dosage: 10 MILLIGRAM
     Route: 048
     Dates: start: 20190830
  11. AMLODIPINE [Concomitant]
     Active Substance: AMLODIPINE BESYLATE
     Indication: Hypertension
     Dosage: 5 MILLIGRAM
     Route: 048
     Dates: start: 20191002
  12. SPIRONOLACTONE [Concomitant]
     Active Substance: SPIRONOLACTONE
     Indication: Oedema peripheral
     Dosage: 25 MILLIGRAM
     Route: 048
     Dates: start: 20191010, end: 20191011
  13. SPIRONOLACTONE [Concomitant]
     Active Substance: SPIRONOLACTONE
     Indication: Hypertension
     Dosage: 50 MILLIGRAM
     Route: 048
     Dates: start: 20191012
  14. MAGNESIUM OXIDE [Concomitant]
     Active Substance: MAGNESIUM OXIDE
     Indication: Constipation
     Dosage: FREQUENCY TEXT: AS NECESSARY
     Route: 048
     Dates: start: 20190925
  15. SENNOSIDES [Concomitant]
     Active Substance: SENNOSIDES
     Indication: Constipation
     Dosage: UNIT DOSE : 2 TABLET?FREQUENCY TEXT: AS NECESSARY
     Route: 048
     Dates: start: 20191020
  16. PETROLATUM [Concomitant]
     Active Substance: PETROLATUM
     Indication: Dry skin
     Dosage: FREQUENCY TEXT: AS NECESSARY
     Route: 062
     Dates: start: 20190923, end: 20190923
  17. PETROLATUM [Concomitant]
     Active Substance: PETROLATUM
     Dosage: FREQUENCY TEXT: AS NECESSARY
     Route: 062
     Dates: start: 20191017
  18. JANUVIA [Concomitant]
     Active Substance: SITAGLIPTIN PHOSPHATE
     Indication: Type 2 diabetes mellitus
     Dosage: 25 MILLIGRAM
     Route: 048
     Dates: start: 20200107
  19. SAHNE [Concomitant]
     Indication: Dry skin
     Dosage: FREQUENCY TEXT: AS NECESSARY
     Route: 062
     Dates: start: 20191017
  20. FUROSEMIDE [Concomitant]
     Active Substance: FUROSEMIDE
     Indication: Oedema peripheral
     Dosage: 20 MILLIGRAM
     Route: 042
     Dates: start: 20191006, end: 20191011
  21. FUROSEMIDE [Concomitant]
     Active Substance: FUROSEMIDE
     Indication: Hypertension
     Dosage: 20 MILLIGRAM
     Route: 048
     Dates: start: 20191010, end: 20191011
  22. FUROSEMIDE [Concomitant]
     Active Substance: FUROSEMIDE
     Dosage: 60 MILLIGRAM
     Route: 042
     Dates: start: 20191012, end: 20191014
  23. FUROSEMIDE [Concomitant]
     Active Substance: FUROSEMIDE
     Dosage: 40 MILLIGRAM
     Route: 042
     Dates: start: 20191015, end: 20191024
  24. FUROSEMIDE [Concomitant]
     Active Substance: FUROSEMIDE
     Dosage: 40 MILLIGRAM
     Route: 048
     Dates: start: 20191025
  25. LOXOPROFEN SODIUM [Concomitant]
     Active Substance: LOXOPROFEN SODIUM
     Indication: Back pain
     Dosage: 100 MILLIGRAM
     Route: 062
     Dates: start: 20200508
  26. ENALAPRIL MALEATE [Concomitant]
     Active Substance: ENALAPRIL MALEATE
     Indication: Hypertension
     Dosage: 5 MILLIGRAM
     Route: 048
     Dates: start: 20200313
  27. BISOPROLOL FUMARATE [Concomitant]
     Active Substance: BISOPROLOL FUMARATE
     Indication: Atrial fibrillation
     Dosage: 0.625 MILLIGRAM
     Route: 048
     Dates: start: 20201008, end: 20201021
  28. BISOPROLOL FUMARATE [Concomitant]
     Active Substance: BISOPROLOL FUMARATE
     Dosage: 1.25 MILLIGRAM
     Route: 048
     Dates: start: 20201022
  29. CEFCAPENE PIVOXIL HYDROCHLORIDE HYDRATE [Concomitant]
     Active Substance: CEFCAPENE PIVOXIL HYDROCHLORIDE HYDRATE
     Indication: Periodontitis
     Dosage: 300 MILLIGRAM
     Route: 048
     Dates: start: 20210414, end: 20210419
  30. CEFCAPENE PIVOXIL HYDROCHLORIDE HYDRATE [Concomitant]
     Active Substance: CEFCAPENE PIVOXIL HYDROCHLORIDE HYDRATE
     Dosage: 300 MILLIGRAM
     Route: 048
     Dates: start: 20210428, end: 20210502
  31. PENTAZOCINE [Concomitant]
     Active Substance: PENTAZOCINE
     Indication: Premedication
     Dosage: FREQUENCY TEXT: ONCE
     Route: 030
     Dates: start: 20220127, end: 20220127
  32. ATROPINE SULFATE [Concomitant]
     Active Substance: ATROPINE SULFATE
     Indication: Premedication
     Dosage: FREQUENCY TEXT: ONCE
     Route: 030
     Dates: start: 20220127, end: 20220127
  33. CARBAZOCHROME SODIUM SULFONATE [Concomitant]
     Active Substance: CARBAZOCHROME SODIUM SULFONATE
     Indication: Haemorrhage prophylaxis
     Dosage: FREQUENCY TEXT: ONCE
     Route: 042
     Dates: start: 20220127, end: 20220127
  34. TRANEXAMIC ACID [Concomitant]
     Active Substance: TRANEXAMIC ACID
     Indication: Haemorrhage prophylaxis
     Dosage: FREQUENCY TEXT: ONCE
     Route: 042
     Dates: start: 20220127, end: 20220127
  35. LEVOFLOXACIN [Concomitant]
     Active Substance: LEVOFLOXACIN
     Indication: Infection prophylaxis
     Dosage: FREQUENCY TEXT: ONCE
     Route: 048
     Dates: start: 20220127, end: 20220127

REACTIONS (1)
  - Cholangiocarcinoma [Not Recovered/Not Resolved]

NARRATIVE: CASE EVENT DATE: 20220105
